FAERS Safety Report 8069217-1 (Version None)
Quarter: 2012Q1

REPORT INFORMATION
  Report Type: 
  Country: None (occurrence: None)
  Receive Date: 20120125
  Receipt Date: 20120117
  Transmission Date: 20120608
  Serious: Yes (Disabling, Other)
  Sender: FDA-Public Use
  Company Number: CZ-BRISTOL-MYERS SQUIBB COMPANY-16352122

PATIENT
  Sex: Male

DRUGS (5)
  1. ABILIFY [Suspect]
     Dosage: SINCE 28-NOV-2008, DOSAGE INCREASED TO 15MG
     Dates: start: 20071119
  2. MILGAMMA [Concomitant]
     Dosage: MILGAMMA N
  3. LOKREN [Concomitant]
  4. BROMAZEPAM [Concomitant]
  5. AMITRIPTYLINE HCL [Concomitant]

REACTIONS (12)
  - DYSPHAGIA [None]
  - HYPERHIDROSIS [None]
  - DIAPHRAGMATIC PARALYSIS [None]
  - URINARY INCONTINENCE [None]
  - DYSPNOEA [None]
  - PALPITATIONS [None]
  - ERECTILE DYSFUNCTION [None]
  - SALIVARY HYPERSECRETION [None]
  - OROPHARYNGEAL PAIN [None]
  - SPEECH DISORDER [None]
  - MYOCLONUS [None]
  - MUSCULOSKELETAL STIFFNESS [None]
